FAERS Safety Report 7481121-6 (Version None)
Quarter: 2011Q2

REPORT INFORMATION
  Report Type: 
  Country: None (occurrence: None)
  Receive Date: 20110516
  Receipt Date: 20110502
  Transmission Date: 20111010
  Serious: Yes (Hospitalization, Other)
  Sender: FDA-Public Use
  Company Number: US-ELI_LILLY_AND_COMPANY-US201009007167

PATIENT
  Sex: Female
  Weight: 72.018 kg

DRUGS (16)
  1. CALCIUM W/VITAMIN D NOS [Concomitant]
     Dosage: 1200 MG, DAILY (1/D)
  2. TRAMADOL HYDROCHLORIDE [Concomitant]
     Indication: PAIN
     Dosage: UNK, EACH EVENING
  3. ASPIRIN [Concomitant]
     Dosage: 81 MG, UNK
  4. FORTEO [Suspect]
     Dosage: 20 UG, DAILY (1/D)
     Route: 030
  5. RESTASIS [Concomitant]
  6. FORTEO [Suspect]
     Indication: OSTEOPOROSIS
     Dosage: 20 UG, DAILY (1/D)
     Route: 030
     Dates: start: 20100903
  7. VITAMIN B-12 [Concomitant]
  8. PLAQUENIL [Concomitant]
     Indication: RHEUMATOID ARTHRITIS
     Dosage: UNK, 2/D
  9. VITAMIN C [Concomitant]
  10. VITAMINS NOS [Concomitant]
  11. CYMBALTA [Concomitant]
     Dosage: 30 MG, DAILY (1/D)
  12. MELATONIN [Concomitant]
  13. SYNTHROID [Concomitant]
     Dosage: 100 UG, UNKNOWN
     Route: 065
  14. FORTEO [Suspect]
     Dosage: 20 UG, DAILY (1/D)
     Route: 030
  15. DIAZIDE [Concomitant]
     Dosage: UNK, DAILY (1/D)
  16. LEVOTHYROXINE SODIUM [Concomitant]
     Dosage: 110 UG, DAILY (1/D)

REACTIONS (9)
  - RECTAL SPASM [None]
  - WHEELCHAIR USER [None]
  - JOINT DISLOCATION [None]
  - INCORRECT ROUTE OF DRUG ADMINISTRATION [None]
  - INJECTION SITE HAEMATOMA [None]
  - IMPAIRED HEALING [None]
  - BONE DISORDER [None]
  - FEMUR FRACTURE [None]
  - MUSCLE SPASMS [None]
